FAERS Safety Report 4661780-3 (Version None)
Quarter: 2005Q2

REPORT INFORMATION
  Report Type: 
  Country: None (occurrence: None)
  Receive Date: 20050512
  Receipt Date: 20050512
  Transmission Date: 20051028
  Serious: Yes (Other)
  Sender: FDA-Public Use
  Company Number: None

PATIENT
  Sex: Female

DRUGS (3)
  1. PHENYTOIN [Suspect]
     Indication: EPILEPSY
     Dosage: 200 MG PO BID
     Route: 048
  2. PRIMIDONE [Concomitant]
  3. DILANTIN [Concomitant]

REACTIONS (2)
  - CONVULSION [None]
  - PHARMACEUTICAL PRODUCT COMPLAINT [None]
